FAERS Safety Report 4931005-X (Version None)
Quarter: 2006Q1

REPORT INFORMATION
  Report Type: 
  Country: None (occurrence: None)
  Receive Date: 20060227
  Receipt Date: 20060214
  Transmission Date: 20060701
  Serious: Yes (Hospitalization)
  Sender: FDA-Public Use
  Company Number: 2006008728

PATIENT
  Age: 39 Year
  Sex: Female
  Weight: 87 kg

DRUGS (1)
  1. SUTENT [Suspect]
     Indication: RENAL CELL CARCINOMA STAGE UNSPECIFIED
     Dosage: 50 MG (50 MG, CYCLIC INTERVAL:  EVERYDAY), ORAL
     Route: 048
     Dates: start: 20051211, end: 20060109

REACTIONS (1)
  - NEPHROTIC SYNDROME [None]
